FAERS Safety Report 8165361-9 (Version None)
Quarter: 2012Q1

REPORT INFORMATION
  Report Type: 
  Country: None (occurrence: None)
  Receive Date: 20120227
  Receipt Date: 20110919
  Transmission Date: 20120608
  Serious: No
  Sender: FDA-Public Use
  Company Number: US-MYLANLABS-2011S1017340

PATIENT
  Age: 58 Year
  Sex: Female

DRUGS (4)
  1. METFORMIN HCL [Suspect]
     Indication: DIABETES MELLITUS
     Route: 048
     Dates: start: 20100803, end: 20100806
  2. METFORMIN HCL [Suspect]
     Route: 048
     Dates: start: 20110101, end: 20110101
  3. HYDROCHLOROTHIAZIDE [Concomitant]
  4. ONE A DAY /02262701/ [Concomitant]

REACTIONS (8)
  - PALPITATIONS [None]
  - MALAISE [None]
  - ASTHENIA [None]
  - DIZZINESS [None]
  - NERVOUSNESS [None]
  - THINKING ABNORMAL [None]
  - CONFUSIONAL STATE [None]
  - FEELING ABNORMAL [None]
